FAERS Safety Report 19041112 (Version 1)
Quarter: 2021Q1

REPORT INFORMATION
  Report Type: Spontaneous
  Country: FR (occurrence: FR)
  Receive Date: 20210322
  Receipt Date: 20210322
  Transmission Date: 20210420
  Serious: Yes (Other)
  Sender: FDA-Public Use
  Company Number: FR-SEBELA IRELAND LIMITED-2021SEB00028

PATIENT
  Age: 26 Year
  Sex: Female

DRUGS (1)
  1. AZATHIOPRINE. [Suspect]
     Active Substance: AZATHIOPRINE
     Indication: CROHN^S DISEASE
     Dosage: 150 MG, 1X/DAY
     Route: 065

REACTIONS (3)
  - Coagulopathy [Recovered/Resolved]
  - Cholestasis of pregnancy [Recovered/Resolved]
  - Vitamin K deficiency [Recovered/Resolved]

NARRATIVE: CASE EVENT DATE: 2012
